FAERS Safety Report 15700984 (Version 1)
Quarter: 2018Q4

REPORT INFORMATION
  Report Type: Spontaneous
  Country: GB (occurrence: GB)
  Receive Date: 20181207
  Receipt Date: 20181207
  Transmission Date: 20190205
  Serious: Yes (Hospitalization, Other)
  Sender: FDA-Public Use
  Company Number: GB-JNJFOC-20181141747

PATIENT

DRUGS (1)
  1. USTEKINUMAB [Suspect]
     Active Substance: USTEKINUMAB
     Indication: CROHN^S DISEASE
     Route: 058

REACTIONS (8)
  - Treatment failure [Unknown]
  - Drug effect decreased [Unknown]
  - Facial paralysis [Unknown]
  - Hospitalisation [Unknown]
  - Surgery [Unknown]
  - Tendonitis [Unknown]
  - Transitional cell carcinoma recurrent [Unknown]
  - Transitional cell carcinoma [Unknown]
